FAERS Safety Report 6645049-3 (Version None)
Quarter: 2010Q1

REPORT INFORMATION
  Report Type: 
  Country: None (occurrence: None)
  Receive Date: 20100322
  Receipt Date: 20080220
  Transmission Date: 20100710
  Serious: Yes (Hospitalization, Other)
  Sender: FDA-Public Use
  Company Number: US-SANOFI-AVENTIS-200712052GDDC

PATIENT
  Age: 53 Year
  Sex: Female
  Weight: 70.3 kg

DRUGS (4)
  1. DOCETAXEL [Suspect]
     Dosage: DOSE UNIT: 75 MG/M**2
     Route: 042
     Dates: start: 20070103, end: 20070103
  2. OXALIPLATIN [Suspect]
     Dosage: DOSE UNIT: 85 MG/M**2
     Route: 042
     Dates: start: 20070103, end: 20070103
  3. BEVACIZUMAB [Suspect]
     Dosage: DOSE UNIT: 15 MG/KG
     Route: 042
     Dates: start: 20070103, end: 20070103
  4. OXYCODONE HCL [Concomitant]
     Dosage: DOSE AS USED: 5/325 MG

REACTIONS (1)
  - WOUND EVISCERATION [None]
